FAERS Safety Report 13047329 (Version 1)
Quarter: 2016Q4

REPORT INFORMATION
  Report Type: Spontaneous
  Country: US (occurrence: US)
  Receive Date: 20161220
  Receipt Date: 20161220
  Transmission Date: 20170207
  Serious: No
  Sender: FDA-Public Use
  Company Number: US-ELI_LILLY_AND_COMPANY-US201612006622

PATIENT
  Age: 49 Year
  Sex: Male

DRUGS (12)
  1. CALCIUM [Concomitant]
     Active Substance: CALCIUM
  2. OXYCODONE [Concomitant]
     Active Substance: OXYCODONE
  3. METFORMIN [Concomitant]
     Active Substance: METFORMIN HYDROCHLORIDE
  4. BYDUREON [Concomitant]
     Active Substance: EXENATIDE
  5. HUMALOG [Suspect]
     Active Substance: INSULIN LISPRO
     Dosage: 200 U, QD
     Route: 058
  6. SIMVASTATIN. [Concomitant]
     Active Substance: SIMVASTATIN
  7. HUMALOG [Suspect]
     Active Substance: INSULIN LISPRO
     Indication: TYPE 2 DIABETES MELLITUS
     Dosage: 200 U, QD
     Route: 058
     Dates: start: 2006
  8. LANTUS [Concomitant]
     Active Substance: INSULIN GLARGINE
  9. ALBUTEROL                          /00139501/ [Concomitant]
     Active Substance: ALBUTEROL
  10. ZOFRAN [Concomitant]
     Active Substance: ONDANSETRON HYDROCHLORIDE
  11. POTASSIUM [Concomitant]
     Active Substance: POTASSIUM
  12. FLUCONAZOLE. [Concomitant]
     Active Substance: FLUCONAZOLE

REACTIONS (3)
  - Blood glucose increased [Recovered/Resolved]
  - Headache [Unknown]
  - Drug ineffective [Recovered/Resolved]

NARRATIVE: CASE EVENT DATE: 20161213
